FAERS Safety Report 10663868 (Version 2)
Quarter: 2014Q4

REPORT INFORMATION
  Report Type: Spontaneous
  Country: US (occurrence: None)
  Receive Date: 20141217
  Receipt Date: 20141231
  Transmission Date: 20150529
  Serious: Yes (Other)
  Sender: FDA-Public Use
  Company Number: JPI-P-029866

PATIENT
  Age: 62 Year
  Sex: Female
  Weight: 74.8 kg

DRUGS (17)
  1. XYREM [Suspect]
     Active Substance: SODIUM OXYBATE
     Indication: NARCOLEPSY
     Dosage: DOSE ADJUSTMENT ORAL
  2. SYNTHROID [Concomitant]
     Active Substance: LEVOTHYROXINE SODIUM
  3. LOSARTAN (LOSARTAN POTASSIUM) [Concomitant]
  4. ORTHOVISC (HYALURONATE SODIUM) [Concomitant]
  5. ALL OTHER THERAPEUTIC PRODUCTS [Concomitant]
     Active Substance: UNSPECIFIED INGREDIENT
  6. WARFARIN [Concomitant]
     Active Substance: WARFARIN
  7. METAMUCIL (PSYLLIUM HUSK) (PLANTAGO OVATA HUSK) [Concomitant]
  8. XYREM [Suspect]
     Active Substance: SODIUM OXYBATE
     Indication: SOMNOLENCE
     Dosage: DOSE ADJUSTMENT ORAL
  9. ZANTAC (RANITIDEINE) [Concomitant]
  10. LOPERAMIDE [Concomitant]
     Active Substance: LOPERAMIDE
  11. B-12 SHOT (CYANOCOBALAMIN) [Concomitant]
  12. BIOTIN [Concomitant]
     Active Substance: BIOTIN
  13. LORAZEPAM. [Concomitant]
     Active Substance: LORAZEPAM
  14. VITAMIN D2 (ERGOCALCIFEROL) [Concomitant]
  15. VITAMIN D3 [Concomitant]
     Active Substance: CHOLECALCIFEROL
  16. IBUPROFEN. [Concomitant]
     Active Substance: IBUPROFEN
  17. SYSTAN (MACROGOL, PROPYLENE GLYCOL) [Concomitant]

REACTIONS (4)
  - Tinea pedis [None]
  - Deep vein thrombosis [None]
  - Cataract [None]
  - Drug hypersensitivity [None]

NARRATIVE: CASE EVENT DATE: 201103
